FAERS Safety Report 5091375-1 (Version None)
Quarter: 2006Q3

REPORT INFORMATION
  Report Type: 
  Country: None (occurrence: None)
  Receive Date: 20060727
  Receipt Date: 20060330
  Transmission Date: 20061208
  Serious: Yes (Other)
  Sender: FDA-Public Use
  Company Number: 2005161001

PATIENT
  Age: 50 Year
  Sex: Female
  Weight: 48.9885 kg

DRUGS (7)
  1. LYRICA [Suspect]
     Indication: FIBROMYALGIA
     Dosage: 25 MG (25 MG,1 IN 1 D),ORAL
     Route: 048
     Dates: start: 20060101
  2. LYRICA [Suspect]
     Indication: HEADACHE
     Dosage: 25 MG (25 MG,1 IN 1 D),ORAL
     Route: 048
     Dates: start: 20060101
  3. SYNTHROID [Concomitant]
  4. WELLBUTRIN [Concomitant]
  5. MAXALT [Concomitant]
  6. EFFEXOR [Concomitant]
  7. ZELNORM [Concomitant]

REACTIONS (5)
  - CONDITION AGGRAVATED [None]
  - DIZZINESS [None]
  - DRUG INEFFECTIVE [None]
  - HEADACHE [None]
  - SOMNOLENCE [None]
